FAERS Safety Report 17790241 (Version 1)
Quarter: 2020Q2

REPORT INFORMATION
  Report Type: Report from Study
  Country: US (occurrence: US)
  Receive Date: 20200514
  Receipt Date: 20200514
  Transmission Date: 20200714
  Serious: No
  Sender: FDA-Public Use
  Company Number: NVSC2020US131498

PATIENT
  Sex: Female

DRUGS (1)
  1. COSENTYX [Suspect]
     Active Substance: SECUKINUMAB
     Indication: COUGH
     Dosage: UNK
     Route: 065

REACTIONS (4)
  - Cough [Unknown]
  - Product use in unapproved indication [Unknown]
  - Asthma [Unknown]
  - Hypersensitivity [Unknown]
